FAERS Safety Report 19501466 (Version 1)
Quarter: 2021Q3

REPORT INFORMATION
  Report Type: Spontaneous
  Country: US (occurrence: US)
  Receive Date: 20210706
  Receipt Date: 20210706
  Transmission Date: 20211014
  Serious: No
  Sender: FDA-Public Use
  Company Number: None

PATIENT
  Age: 58 Year

DRUGS (1)
  1. SOFOSBUVIR AND VELPATASVIR [Suspect]
     Active Substance: SOFOSBUVIR\VELPATASVIR
     Dosage: ?          OTHER DOSE:400?100MG;?
     Route: 048
     Dates: start: 202106

REACTIONS (5)
  - Fall [None]
  - Therapy interrupted [None]
  - Headache [None]
  - Fatigue [None]
  - Hip fracture [None]

NARRATIVE: CASE EVENT DATE: 20210617
